FAERS Safety Report 18472029 (Version 3)
Quarter: 2020Q4

REPORT INFORMATION
  Report Type: Spontaneous
  Country: AR (occurrence: AR)
  Receive Date: 20201105
  Receipt Date: 20201219
  Transmission Date: 20210114
  Serious: Yes (Hospitalization, Other)
  Sender: FDA-Public Use
  Company Number: AR-AMGEN-ARGSP2020179416

PATIENT
  Age: 69 Year
  Sex: Female

DRUGS (1)
  1. ENBREL [Suspect]
     Active Substance: ETANERCEPT
     Indication: RHEUMATOID ARTHRITIS
     Dosage: 50 MILLIGRAM, QWK
     Route: 065
     Dates: start: 20130710

REACTIONS (14)
  - Gallbladder disorder [Unknown]
  - Muscular weakness [Unknown]
  - Lower limb fracture [Unknown]
  - Bone pain [Unknown]
  - Hypoaesthesia [Unknown]
  - Hand fracture [Unknown]
  - Therapeutic product effect decreased [Unknown]
  - Spinal pain [Unknown]
  - Malaise [Unknown]
  - Pain in extremity [Unknown]
  - Liver disorder [Unknown]
  - Fall [Unknown]
  - Arthralgia [Unknown]
  - Blister [Unknown]

NARRATIVE: CASE EVENT DATE: 202008
